APPROVED DRUG PRODUCT: NYSERT
Active Ingredient: NYSTATIN
Strength: 100,000 UNITS
Dosage Form/Route: SUPPOSITORY;VAGINAL
Application: N050478 | Product #001
Applicant: WARNER CHILCOTT CO LLC
Approved: Approved Prior to Jan 1, 1982 | RLD: No | RS: No | Type: DISCN